FAERS Safety Report 18847759 (Version 2)
Quarter: 2021Q1

REPORT INFORMATION
  Report Type: Spontaneous
  Country: US (occurrence: US)
  Receive Date: 20210204
  Receipt Date: 20210212
  Transmission Date: 20210419
  Serious: Yes (Other)
  Sender: FDA-Public Use
  Company Number: US-009507513-2101USA011673

PATIENT
  Age: 20 Year
  Sex: Female

DRUGS (1)
  1. NEXPLANON [Suspect]
     Active Substance: ETONOGESTREL
     Indication: CONTRACEPTION
     Dosage: 1 IMPLANT (68 MG), ONCE; LEFT ARM
     Route: 059
     Dates: start: 20180918

REACTIONS (5)
  - Gestational diabetes [Unknown]
  - Unintended pregnancy [Recovered/Resolved]
  - Maternal exposure during breast feeding [Unknown]
  - Pregnancy with implant contraceptive [Recovered/Resolved]
  - Adverse event [Unknown]

NARRATIVE: CASE EVENT DATE: 2020
